FAERS Safety Report 4425553-9 (Version None)
Quarter: 2004Q3

REPORT INFORMATION
  Report Type: 
  Country: None (occurrence: None)
  Receive Date: 20040810
  Receipt Date: 20040726
  Transmission Date: 20050211
  Serious: Yes (Hospitalization)
  Sender: FDA-Public Use
  Company Number: MEDI-0002142

PATIENT
  Age: 53 Year
  Sex: Male
  Weight: 75.2971 kg

DRUGS (3)
  1. ETHYOL [Suspect]
     Indication: RADIOTHERAPY
     Dosage: 500 MG, 1 IN 1 D, SUBCUTANEOUS
     Route: 058
     Dates: start: 20040614, end: 20040628
  2. RADIATION THERAPY [Concomitant]
  3. CHEMOTHERAPY [Concomitant]

REACTIONS (3)
  - BRONCHITIS ACUTE [None]
  - DEHYDRATION [None]
  - THROMBOCYTOPENIA [None]
